FAERS Safety Report 9603511 (Version 3)
Quarter: 2013Q4

REPORT INFORMATION
  Report Type: Spontaneous
  Country: JP (occurrence: JP)
  Receive Date: 20131007
  Receipt Date: 20131224
  Transmission Date: 20140711
  Serious: Yes (Hospitalization, Disabling, Other)
  Sender: FDA-Public Use
  Company Number: JP-GILEAD-2013-0084704

PATIENT
  Age: 77 Year
  Sex: Male
  Weight: 58 kg

DRUGS (9)
  1. HEPSERA [Suspect]
     Indication: CHRONIC HEPATITIS B
     Dosage: 10 MG, QD
     Route: 048
     Dates: start: 20080218, end: 20130305
  2. ENTECAVIR [Suspect]
     Indication: PRODUCT USED FOR UNKNOWN INDICATION
     Dosage: 1 MG, QD
     Route: 065
  3. ZEFFIX [Concomitant]
     Indication: CHRONIC HEPATITIS B
     Dosage: 100 MG, QD
     Route: 048
     Dates: end: 20130306
  4. FAMOTIDINE [Concomitant]
     Dosage: 20MG PER DAY
     Route: 048
  5. FAMOTIDINE [Concomitant]
     Dosage: 20MG PER DAY
     Route: 048
  6. ASPARA POTASSIUM [Concomitant]
     Dosage: 11G THREE TIMES PER DAY
     Route: 048
     Dates: start: 20130301
  7. ASPARA POTASSIUM [Concomitant]
     Dosage: 9 G, QD
  8. SLOW-K [Concomitant]
     Dosage: 2400 MG, QD
     Dates: start: 201302, end: 20130304
  9. PHOSRIBBON COMBINATION GRANULES [Concomitant]
     Dosage: 600 MG, QD
     Dates: start: 20130926

REACTIONS (18)
  - Renal artery arteriosclerosis [Unknown]
  - Tubulointerstitial nephritis [Unknown]
  - Pneumonia [Unknown]
  - Hypokalaemia [Unknown]
  - Tubulointerstitial nephritis [Unknown]
  - Fanconi syndrome acquired [Recovering/Resolving]
  - Osteomalacia [Unknown]
  - Arthralgia [Unknown]
  - Femoral neck fracture [Unknown]
  - Renal impairment [Unknown]
  - Hypophosphataemia [Unknown]
  - Hypouricaemia [Unknown]
  - Acquired aminoaciduria [Unknown]
  - Metabolic acidosis [Unknown]
  - Multiple fractures [Unknown]
  - Renal tubular disorder [Unknown]
  - Renal tubular atrophy [Unknown]
  - Metastases to bone [Unknown]
